FAERS Safety Report 8785269 (Version 1)
Quarter: 2012Q4

REPORT INFORMATION
  Report Type: Report from Study
  Country: US (occurrence: US)
  Receive Date: 20120914
  Receipt Date: 20120914
  Transmission Date: 20130627
  Serious: Yes (Hospitalization)
  Sender: FDA-Public Use
  Company Number: US-JNJFOC-20120905346

PATIENT
  Age: 13 Year
  Sex: Male
  Weight: 41.1 kg

DRUGS (7)
  1. REMICADE [Suspect]
     Indication: CROHN^S DISEASE
     Route: 042
  2. REMICADE [Suspect]
     Indication: CROHN^S DISEASE
     Route: 042
     Dates: start: 20120519
  3. REMICADE [Suspect]
     Indication: CROHN^S DISEASE
     Route: 042
     Dates: start: 20111117
  4. FERROUS SULFATE [Concomitant]
  5. 5-ASA [Concomitant]
  6. ANTIBIOTICS FOR IBD [Concomitant]
  7. NOVOLOG 70/30 INSULIN [Concomitant]

REACTIONS (1)
  - Crohn^s disease [Recovered/Resolved]
